FAERS Safety Report 20054619 (Version 1)
Quarter: 2021Q4

REPORT INFORMATION
  Report Type: Spontaneous
  Country: US (occurrence: US)
  Receive Date: 20211110
  Receipt Date: 20211110
  Transmission Date: 20220303
  Serious: Yes (Death, Hospitalization)
  Sender: FDA-Public Use
  Company Number: US-PFIZER INC-202101506918

PATIENT
  Age: 78 Year
  Sex: Male
  Weight: 56.7 kg

DRUGS (2)
  1. VFEND [Suspect]
     Active Substance: VORICONAZOLE
     Indication: Blastic plasmacytoid dendritic cell neoplasia
     Dosage: 100 MG, 1X/DAY (100MG ONE TIME A DAY)
  2. FLUCONAZOLE [Concomitant]
     Active Substance: FLUCONAZOLE
     Dosage: UNK, DAILY (EVERYDAY)

REACTIONS (3)
  - Pyrexia [Fatal]
  - Infection [Fatal]
  - Off label use [Unknown]
